FAERS Safety Report 17799824 (Version 1)
Quarter: 2020Q2

REPORT INFORMATION
  Report Type: Spontaneous
  Country: US (occurrence: US)
  Receive Date: 20200518
  Receipt Date: 20200518
  Transmission Date: 20200714
  Serious: No
  Sender: FDA-Public Use
  Company Number: US-BAYER-2020-084719

PATIENT
  Age: 79 Year
  Sex: Female

DRUGS (2)
  1. VITRAKVI [Suspect]
     Active Substance: LAROTRECTINIB
     Indication: BREAST CANCER STAGE IV
     Dosage: UNK
  2. VITRAKVI [Suspect]
     Active Substance: LAROTRECTINIB
     Indication: BREAST CANCER STAGE IV
     Dosage: 75 MG, BID
     Route: 048

REACTIONS (2)
  - Wrong technique in product usage process [None]
  - Hypersensitivity [None]
